FAERS Safety Report 11218164 (Version 1)
Quarter: 2015Q2

REPORT INFORMATION
  Report Type: Spontaneous
  Country: US (occurrence: None)
  Receive Date: 20150624
  Receipt Date: 20150624
  Transmission Date: 20150821
  Serious: No
  Sender: FDA-Public Use
  Company Number: None

PATIENT
  Age: 37 Year
  Sex: Male
  Weight: 98 kg

DRUGS (1)
  1. CALDOLOR [Suspect]
     Active Substance: IBUPROFEN
     Indication: PROCEDURAL PAIN
     Dosage: 800 MG, 1 TIME, INTRAVENOUS?
     Route: 042
     Dates: start: 20150623, end: 20150623

REACTIONS (1)
  - Drug chemical incompatibility [None]

NARRATIVE: CASE EVENT DATE: 20150623
